FAERS Safety Report 7978066-1 (Version None)
Quarter: 2011Q4

REPORT INFORMATION
  Report Type: 
  Country: None (occurrence: None)
  Receive Date: 20111214
  Receipt Date: 20111212
  Transmission Date: 20120403
  Serious: No
  Sender: FDA-Public Use
  Company Number: US-BIOGENIDEC-2011BI046997

PATIENT
  Sex: Male

DRUGS (2)
  1. AVONEX [Suspect]
     Indication: MULTIPLE SCLEROSIS
     Route: 030
     Dates: start: 20080924
  2. AVONEX [Suspect]
     Route: 030
     Dates: start: 20040311, end: 20060520

REACTIONS (3)
  - VISUAL IMPAIRMENT [None]
  - DYSGRAPHIA [None]
  - MEMORY IMPAIRMENT [None]
